FAERS Safety Report 6406183-6 (Version None)
Quarter: 2009Q4

REPORT INFORMATION
  Report Type: 
  Country: None (occurrence: None)
  Receive Date: 20091019
  Receipt Date: 20091009
  Transmission Date: 20100525
  Serious: Yes (Hospitalization)
  Sender: FDA-Public Use
  Company Number: JP-ABBOTT-09P-087-0559811-00

PATIENT
  Sex: Female
  Weight: 55.6 kg

DRUGS (18)
  1. HUMIRA [Suspect]
     Indication: RHEUMATOID ARTHRITIS
     Route: 058
     Dates: start: 20090302, end: 20090423
  2. HUMIRA [Suspect]
     Route: 058
     Dates: start: 20090122, end: 20090205
  3. PREDNISOLONE [Suspect]
     Indication: RHEUMATOID ARTHRITIS
     Route: 048
     Dates: start: 20080228, end: 20090215
  4. PREDNISOLONE [Suspect]
     Indication: OBLITERATIVE BRONCHIOLITIS
     Route: 048
     Dates: start: 20090216, end: 20090225
  5. PREDNISOLONE [Suspect]
     Route: 048
     Dates: start: 20090226
  6. METHOTREXATE [Suspect]
     Indication: RHEUMATOID ARTHRITIS
     Route: 048
     Dates: start: 20080228, end: 20090205
  7. METHOTREXATE [Suspect]
     Route: 048
     Dates: start: 20090224
  8. INDOMETACIN FARNESIL [Concomitant]
     Indication: RHEUMATOID ARTHRITIS
     Route: 048
     Dates: start: 20080228
  9. MISOPROSTOL [Concomitant]
     Indication: RHEUMATOID ARTHRITIS
     Dosage: 400UG DAILY
     Route: 048
     Dates: start: 20080228
  10. ALENDRONATE SODIUM [Concomitant]
     Indication: OSTEOPOROSIS
     Route: 048
     Dates: start: 20080904
  11. CILNIDIPINE [Concomitant]
     Indication: HYPERTENSION
     Route: 048
     Dates: start: 20090205
  12. ASPIRIN [Concomitant]
     Indication: CEREBRAL INFARCTION
     Route: 048
     Dates: start: 20080228
  13. SULFAMETHOXAZOLE [Concomitant]
     Indication: ANTIFUNGAL PROPHYLAXIS
     Route: 048
     Dates: start: 20081228
  14. DICLOFENAC SODIUM [Concomitant]
     Indication: RHEUMATOID ARTHRITIS
     Dosage: ROUTE: PR
     Dates: start: 20080626
  15. OMEPRAZOLE [Concomitant]
     Indication: PROPHYLAXIS AGAINST GASTROINTESTINAL ULCER
     Route: 048
     Dates: start: 20080626
  16. PENICILLAMINE [Concomitant]
     Indication: RHEUMATOID ARTHRITIS
  17. AMLODIPINE BESYLATE [Concomitant]
     Indication: DRUG USE FOR UNKNOWN INDICATION
  18. L-CARBOCISTEINE [Concomitant]
     Indication: DRUG USE FOR UNKNOWN INDICATION

REACTIONS (3)
  - ARTHRITIS [None]
  - BRONCHOPNEUMONIA [None]
  - HAEMOPHILUS INFECTION [None]
